FAERS Safety Report 7957165-4 (Version None)
Quarter: 2011Q4

REPORT INFORMATION
  Report Type: 
  Country: None (occurrence: None)
  Receive Date: 20111205
  Receipt Date: 20111201
  Transmission Date: 20120403
  Serious: Yes (Other)
  Sender: FDA-Public Use
  Company Number: US-BAYER-2011-112181

PATIENT
  Age: 28 Year
  Sex: Female

DRUGS (1)
  1. MIRENA [Suspect]
     Indication: CONTRACEPTION
     Dosage: DAILY DOSE 20 ?G
     Route: 015
     Dates: start: 20111007, end: 20111011

REACTIONS (4)
  - MEDICAL DEVICE DISCOMFORT [None]
  - VAGINAL HAEMORRHAGE [None]
  - DEVICE DISLOCATION [None]
  - PRODUCT SHAPE ISSUE [None]
